FAERS Safety Report 9523992 (Version 2)
Quarter: 2014Q2

REPORT INFORMATION
  Report Type: Spontaneous
  Country: FR (occurrence: None)
  Receive Date: 20130912
  Receipt Date: 20140418
  Transmission Date: 20141212
  Serious: Yes (Other)
  Sender: FDA-Public Use
  Company Number: 2013-FR-000165

PATIENT
  Age: 68 Year
  Sex: Female

DRUGS (6)
  1. XYREM [Suspect]
     Indication: CATAPLEXY
     Route: 048
     Dates: start: 20080120, end: 20130214
  2. XYREM [Suspect]
     Indication: NARCOLEPSY
     Route: 048
     Dates: start: 20080120, end: 20130214
  3. PARACETAMOL (PARACETAMOL) [Concomitant]
  4. PROZAC  (FLUOXETINE HYDROCHLORIDE) [Concomitant]
  5. PROTELOS(STRONTIUM RANELATE) [Concomitant]
  6. CALCIUM VITAMINE D3 (CALCIUM CARBONATE, COLECALCIFEROL) [Concomitant]

REACTIONS (6)
  - Knee arthroplasty [None]
  - Nocturnal dyspnoea [None]
  - Nasopharyngitis [None]
  - Respiratory disorder [None]
  - Condition aggravated [None]
  - Somnambulism [None]
